FAERS Safety Report 9046723 (Version 1)
Quarter: 2013Q1

REPORT INFORMATION
  Report Type: Spontaneous
  Country: US (occurrence: None)
  Receive Date: 20130128
  Receipt Date: 20130128
  Transmission Date: 20140127
  Serious: No
  Sender: FDA-Public Use
  Company Number: None

PATIENT
  Age: 66 Year
  Sex: Female

DRUGS (1)
  1. FORTEO [Suspect]
     Route: 058
     Dates: start: 20130123, end: 20130124

REACTIONS (7)
  - Spinal pain [None]
  - Nausea [None]
  - Toothache [None]
  - Pain in jaw [None]
  - Flushing [None]
  - Pharyngeal disorder [None]
  - Product physical issue [None]
